FAERS Safety Report 6208189-9 (Version None)
Quarter: 2009Q2

REPORT INFORMATION
  Report Type: 
  Country: None (occurrence: None)
  Receive Date: 20090529
  Receipt Date: 20090519
  Transmission Date: 20091009
  Serious: Yes (Hospitalization)
  Sender: FDA-Public Use
  Company Number: PHHY2009MX18804

PATIENT
  Sex: Female

DRUGS (1)
  1. DIOVAN HCT [Suspect]
     Indication: HYPERTENSION
     Dosage: 1 DF (160/25 MG), QD
     Route: 048
     Dates: start: 20050801

REACTIONS (5)
  - EYE INJURY [None]
  - EYE OPERATION [None]
  - FALL [None]
  - OPEN WOUND [None]
  - VERTIGO [None]
